FAERS Safety Report 5268899-7 (Version None)
Quarter: 2007Q1

REPORT INFORMATION
  Report Type: 
  Country: None (occurrence: None)
  Receive Date: 20070313
  Receipt Date: 20070301
  Transmission Date: 20070707
  Serious: Yes (Hospitalization)
  Sender: FDA-Public Use
  Company Number: ALA_0018_2007

PATIENT
  Age: 44 Year
  Sex: Male

DRUGS (1)
  1. MESALAZINE [Suspect]
     Indication: CROHN'S DISEASE
     Dosage: 3 G QDAY UNK

REACTIONS (3)
  - BLOOD ALKALINE PHOSPHATASE INCREASED [None]
  - NEPHRITIS INTERSTITIAL [None]
  - PERICARDITIS [None]
